FAERS Safety Report 12047222 (Version 1)
Quarter: 2016Q1

REPORT INFORMATION
  Report Type: Spontaneous
  Country: AU (occurrence: AU)
  Receive Date: 20160208
  Receipt Date: 20160208
  Transmission Date: 20160526
  Serious: Yes (Other)
  Sender: FDA-Public Use
  Company Number: AU-SA-2016SA020256

PATIENT
  Age: 56 Year
  Sex: Male

DRUGS (4)
  1. ALEMTUZUMAB [Suspect]
     Active Substance: ALEMTUZUMAB
     Indication: IMMUNOSUPPRESSANT DRUG THERAPY
     Dosage: CYCLE 1-3
     Route: 065
  2. ALEMTUZUMAB [Suspect]
     Active Substance: ALEMTUZUMAB
     Indication: IMMUNOSUPPRESSANT DRUG THERAPY
     Dosage: CYCLE 4-6
     Route: 065
  3. FLUDARABINE PHOSPHATE. [Suspect]
     Active Substance: FLUDARABINE PHOSPHATE
     Indication: IMMUNOSUPPRESSANT DRUG THERAPY
     Dosage: CYCLE 4-6
     Route: 065
  4. FLUDARABINE PHOSPHATE. [Suspect]
     Active Substance: FLUDARABINE PHOSPHATE
     Indication: IMMUNOSUPPRESSANT DRUG THERAPY
     Dosage: CYCLE 1-3
     Route: 065

REACTIONS (3)
  - Lateral medullary syndrome [Recovering/Resolving]
  - Cerebrovascular accident [Recovering/Resolving]
  - Meningitis aspergillus [Unknown]
